FAERS Safety Report 22087001 (Version 1)
Quarter: 2023Q1

REPORT INFORMATION
  Report Type: Spontaneous
  Country: US (occurrence: None)
  Receive Date: 20230313
  Receipt Date: 20230313
  Transmission Date: 20230418
  Serious: No
  Sender: FDA-Public Use
  Company Number: 2023A055531

PATIENT
  Sex: Male

DRUGS (14)
  1. TEZSPIRE [Suspect]
     Active Substance: TEZEPELUMAB-EKKO
     Indication: Asthma
     Route: 058
  2. AMITRIPTYLINE [Concomitant]
     Active Substance: AMITRIPTYLINE
  3. BUSPIRONE HC [Concomitant]
  4. PREDNISONE [Concomitant]
     Active Substance: PREDNISONE
  5. VITAMIN D3 [Concomitant]
     Active Substance: CHOLECALCIFEROL
  6. BACLOFEN [Concomitant]
     Active Substance: BACLOFEN
  7. ATORVASTATIN [Concomitant]
     Active Substance: ATORVASTATIN
  8. MELOXICAM [Concomitant]
     Active Substance: MELOXICAM
  9. METOPROLOL TARTRATE [Concomitant]
     Active Substance: METOPROLOL TARTRATE
  10. MONTELUKAST [Concomitant]
     Active Substance: MONTELUKAST SODIUM
  11. PANTOPRAZOLE [Concomitant]
     Active Substance: PANTOPRAZOLE
  12. ROPINIROLE [Concomitant]
     Active Substance: ROPINIROLE
  13. TAMSULOSIN H [Concomitant]
  14. VERAPAMIL HC [Concomitant]

REACTIONS (2)
  - Sinusitis [Not Recovered/Not Resolved]
  - Product dose omission issue [Unknown]
